FAERS Safety Report 7484060-X (Version None)
Quarter: 2011Q2

REPORT INFORMATION
  Report Type: 
  Country: None (occurrence: None)
  Receive Date: 20110513
  Receipt Date: 20110513
  Transmission Date: 20111010
  Serious: Yes (Hospitalization)
  Sender: FDA-Public Use
  Company Number: None

PATIENT
  Sex: Female
  Weight: 113.3993 kg

DRUGS (3)
  1. LITHIUM CARBONATE [Suspect]
     Indication: SCHIZOAFFECTIVE DISORDER
     Dosage: 300 MG TID PO
     Route: 048
     Dates: start: 20110314, end: 20110325
  2. LITHIUM CARBONATE [Suspect]
     Indication: MOOD ALTERED
     Dosage: 300 MG TID PO
     Route: 048
     Dates: start: 20110314, end: 20110325
  3. DICLOFENAC SODIUM [Suspect]
     Indication: ARTHRITIS
     Dosage: 100 MG OD PO
     Route: 048
     Dates: start: 20110314, end: 20110325

REACTIONS (10)
  - DIZZINESS [None]
  - BLOOD CREATININE INCREASED [None]
  - DYSPNOEA [None]
  - DRUG LEVEL ABOVE THERAPEUTIC [None]
  - RED BLOOD CELL COUNT DECREASED [None]
  - DRUG INTERACTION [None]
  - HAEMATOCRIT DECREASED [None]
  - ASTHENIA [None]
  - TOXICITY TO VARIOUS AGENTS [None]
  - HAEMOGLOBIN DECREASED [None]
